FAERS Safety Report 8889292 (Version 1)
Quarter: 2012Q4

REPORT INFORMATION
  Report Type: 
  Country: JP (occurrence: JP)
  Receive Date: 20121106
  Receipt Date: 20121106
  Transmission Date: 20130627
  Serious: Yes (Life-Threatening, Hospitalization)
  Sender: FDA-Public Use
  Company Number: JP-PFIZER INC-2012270922

PATIENT
  Age: 79 Year
  Sex: Female
  Weight: 46 kg

DRUGS (2)
  1. SELARA [Suspect]
     Indication: HYPERTENSION
     Dosage: 50 mg, 1x/day
     Route: 048
     Dates: start: 20120407, end: 20121025
  2. CRESTOR [Concomitant]
     Indication: HYPERLIPIDAEMIA
     Dosage: 2.5 mg, 1x/day
     Route: 048
     Dates: start: 20110820

REACTIONS (1)
  - Shock [Recovered/Resolved]
